FAERS Safety Report 4320412-4 (Version None)
Quarter: 2004Q1

REPORT INFORMATION
  Report Type: 
  Country: None (occurrence: None)
  Receive Date: 20040317
  Receipt Date: 20040302
  Transmission Date: 20041129
  Serious: Yes (Hospitalization)
  Sender: FDA-Public Use
  Company Number: 2004-06767

PATIENT
  Age: 50 Year
  Sex: Female
  Weight: 70 kg

DRUGS (3)
  1. VIREAD [Suspect]
     Indication: HIV INFECTION
     Dates: start: 20031114
  2. KALETRA [Suspect]
     Indication: HIV INFECTION
     Dates: start: 20031114, end: 20040123
  3. VIDEX [Suspect]
     Indication: HIV INFECTION
     Dates: start: 20031114

REACTIONS (2)
  - DIARRHOEA [None]
  - PANCYTOPENIA [None]
